FAERS Safety Report 8585618-7 (Version None)
Quarter: 2012Q3

REPORT INFORMATION
  Report Type: 
  Country: None (occurrence: None)
  Receive Date: 20120810
  Receipt Date: 20120801
  Transmission Date: 20120928
  Serious: Yes (Other)
  Sender: FDA-Public Use
  Company Number: US-JNJFOC-20120801678

PATIENT
  Age: 21 Year
  Sex: Male

DRUGS (6)
  1. TOPIRAMATE [Suspect]
     Route: 065
  2. TOPAMAX [Suspect]
     Indication: MIGRAINE PROPHYLAXIS
     Route: 048
  3. TOPAMAX [Suspect]
     Route: 048
  4. TOPIRAMATE [Suspect]
     Route: 065
  5. TOPAMAX [Suspect]
     Route: 048
  6. TOPIRAMATE [Suspect]
     Indication: MIGRAINE PROPHYLAXIS
     Route: 065

REACTIONS (4)
  - MUSCULOSKELETAL CHEST PAIN [None]
  - ASTHMA [None]
  - DYSPNOEA [None]
  - COUGH [None]
